FAERS Safety Report 5591572-2 (Version None)
Quarter: 2007Q4

REPORT INFORMATION
  Report Type: 
  Country: None (occurrence: None)
  Receive Date: 20071212
  Receipt Date: 20070611
  Transmission Date: 20080405
  Serious: Yes (Other)
  Sender: FDA-Public Use
  Company Number: USA-2007-0027834

PATIENT
  Sex: Female

DRUGS (1)
  1. OXYCONTIN [Suspect]
     Indication: PAIN
     Dosage: SEE TEXT

REACTIONS (5)
  - AMNESIA [None]
  - DRUG DEPENDENCE [None]
  - DRUG TOLERANCE [None]
  - LEARNING DISORDER [None]
  - PERSONALITY DISORDER [None]
